FAERS Safety Report 9024636 (Version 2)
Quarter: 2013Q2

REPORT INFORMATION
  Report Type: Spontaneous
  Country: JP (occurrence: JP)
  Receive Date: 20130120
  Receipt Date: 20130503
  Transmission Date: 20140414
  Serious: Yes (Hospitalization)
  Sender: FDA-Public Use
  Company Number: PHHY2013JP004295

PATIENT
  Sex: Female

DRUGS (6)
  1. MEXILETINE [Suspect]
     Dosage: 300 MG, UNK
  2. ATORVASTATIN CALCIUM TRIHYDRATE [Concomitant]
  3. ATENOLOL [Concomitant]
  4. OLMESARTAN MEDOXOMIL [Concomitant]
  5. AMLODIPINE BESILATE [Concomitant]
  6. ETHYL LOFLAZEPATE [Concomitant]

REACTIONS (10)
  - Drug reaction with eosinophilia and systemic symptoms [Recovered/Resolved]
  - Pyrexia [Recovered/Resolved]
  - Drug eruption [Recovered/Resolved]
  - Rash [Recovered/Resolved]
  - Nausea [Recovered/Resolved]
  - Lymphadenopathy [Recovered/Resolved]
  - Hyperglycaemia [Recovered/Resolved]
  - Fulminant type 1 diabetes mellitus [Recovered/Resolved]
  - Autoimmune thyroiditis [Unknown]
  - Basedow^s disease [Unknown]
